FAERS Safety Report 5450486-9 (Version None)
Quarter: 2007Q3

REPORT INFORMATION
  Report Type: 
  Country: None (occurrence: None)
  Receive Date: 20070912
  Receipt Date: 20070904
  Transmission Date: 20080115
  Serious: No
  Sender: FDA-Public Use
  Company Number: US-BOEHRINGER INGELHEIM PHARMACEUTICALS, INC.-2006-BP-11430BP

PATIENT
  Age: 80 Year
  Sex: Male

DRUGS (8)
  1. FLOMAX [Suspect]
     Indication: BENIGN PROSTATIC HYPERPLASIA
     Route: 048
     Dates: start: 20060601
  2. FLOMAX [Suspect]
     Route: 048
     Dates: start: 20060101
  3. LISINOPRIL [Concomitant]
     Indication: HYPERTENSION
     Dosage: 20 MG
  4. HYDROCHLOROTHIAZIDE [Concomitant]
     Indication: HYPERTENSION
     Dosage: 12.5 MG
  5. DILTIAZEM [Concomitant]
     Indication: HYPERTENSION
     Dosage: 180 MG
  6. PULMICORT [Concomitant]
     Indication: ASTHMA
     Dosage: TWICE A DAY
  7. HYDROXYUREA [Concomitant]
     Indication: POLYCYTHAEMIA VERA
     Dosage: 500 MG EVERY OTHER DAY
  8. ALBUTEROL [Concomitant]

REACTIONS (4)
  - ASTHENIA [None]
  - INSOMNIA [None]
  - URINE FLOW DECREASED [None]
  - VISION BLURRED [None]
